FAERS Safety Report 8564495-4 (Version None)
Quarter: 2012Q3

REPORT INFORMATION
  Report Type: 
  Country: None (occurrence: None)
  Receive Date: 20120803
  Receipt Date: 20120731
  Transmission Date: 20120928
  Serious: Yes (Disabling, Other)
  Sender: FDA-Public Use
  Company Number: US-PFIZER INC-2012186156

PATIENT
  Sex: Female
  Weight: 55.3 kg

DRUGS (3)
  1. MELATONIN [Concomitant]
     Indication: INSOMNIA
     Dosage: 3 MG
  2. CELEBREX [Suspect]
     Indication: PAIN IN EXTREMITY
     Dosage: 200 MG, 1X/DAY
     Route: 048
     Dates: start: 19990101
  3. NEXIUM [Concomitant]
     Dosage: UNK

REACTIONS (6)
  - BRAIN CANCER METASTATIC [None]
  - SKIN CANCER [None]
  - PAIN IN EXTREMITY [None]
  - MUSCULOSKELETAL DISORDER [None]
  - BALANCE DISORDER [None]
  - BONE NEOPLASM MALIGNANT [None]
